FAERS Safety Report 6717965-5 (Version None)
Quarter: 2010Q2

REPORT INFORMATION
  Report Type: 
  Country: None (occurrence: None)
  Receive Date: 20100510
  Receipt Date: 20100503
  Transmission Date: 20101027
  Serious: Yes (Hospitalization)
  Sender: FDA-Public Use
  Company Number: PHHY2010FR28737

PATIENT
  Sex: Female

DRUGS (4)
  1. TEGRETOL [Suspect]
     Indication: EPILEPSY
     Dosage: UNK
     Route: 048
     Dates: end: 20100101
  2. KARDEGIC [Suspect]
     Indication: ATHEROSCLEROSIS PROPHYLAXIS
     Route: 048
  3. HALDOL [Concomitant]
  4. ZYRTEC [Concomitant]

REACTIONS (2)
  - DEHYDRATION [None]
  - THROMBOCYTOPENIA [None]
